FAERS Safety Report 9715996 (Version 1)
Quarter: 2013Q4

REPORT INFORMATION
  Report Type: Spontaneous
  Country: CA (occurrence: CA)
  Receive Date: 20131127
  Receipt Date: 20131127
  Transmission Date: 20140711
  Serious: Yes (Death)
  Sender: FDA-Public Use
  Company Number: CA-B.I. PHARMACEUTICALS,INC./RIDGEFIELD-2013-BI-39148CN

PATIENT
  Age: 65 Year
  Sex: Male

DRUGS (2)
  1. PRADAX [Suspect]
     Dosage: 300 MG
     Route: 065
  2. MAVIK [Concomitant]

REACTIONS (5)
  - Abdominal wall haemorrhage [Fatal]
  - Haematemesis [Fatal]
  - Subdural haematoma [Fatal]
  - Haemorrhage intracranial [Fatal]
  - Soft tissue haemorrhage [Fatal]
